FAERS Safety Report 21877035 (Version 1)
Quarter: 2023Q1

REPORT INFORMATION
  Report Type: Spontaneous
  Country: US (occurrence: US)
  Receive Date: 20230118
  Receipt Date: 20230118
  Transmission Date: 20230417
  Serious: Yes (Other)
  Sender: FDA-Public Use
  Company Number: US-CELLTRION INC.-2023US000592

PATIENT

DRUGS (5)
  1. INFLIXIMAB [Suspect]
     Active Substance: INFLIXIMAB
     Indication: Colitis
     Dosage: UNK
  2. HYDROCORTISONE [Concomitant]
     Active Substance: HYDROCORTISONE
     Dosage: TWICE A DAY
  3. PREDNISONE [Concomitant]
     Active Substance: PREDNISONE
     Dosage: 40 MILLIGRAMS DAILY AND AFTER 2 WEEKS, THE DOSAGE WAS TAPERED BY 5 MG WEEKLY
  4. VEDOLIZUMAB [Concomitant]
     Active Substance: VEDOLIZUMAB
     Dosage: INITIATED WITH INDUCTION DOSING
  5. VEDOLIZUMAB [Concomitant]
     Active Substance: VEDOLIZUMAB
     Dosage: EVERY 8 WEEKS AND SUBSEQUENTLY INCREASED TO EVERY 4 WEEKS BECAUSE THE RESPONSE TO TREATMENT WAS MINI

REACTIONS (1)
  - Drug ineffective for unapproved indication [Unknown]
